FAERS Safety Report 6724287-5 (Version None)
Quarter: 2010Q2

REPORT INFORMATION
  Report Type: 
  Country: None (occurrence: None)
  Receive Date: 20100513
  Receipt Date: 20100503
  Transmission Date: 20101027
  Serious: Yes (Hospitalization)
  Sender: FDA-Public Use
  Company Number: DE-ROCHE-689126

PATIENT
  Sex: Female
  Weight: 53 kg

DRUGS (2)
  1. MYCOPHENOLATE MOFETIL [Suspect]
     Indication: PROPHYLAXIS AGAINST TRANSPLANT REJECTION
     Dosage: LAST DOSE PRIOR TO SAE: 06 FEB 2010.
     Route: 048
     Dates: start: 20100114, end: 20100206
  2. MYCOPHENOLATE MOFETIL [Suspect]
     Dosage: DOSE REDUCED
     Route: 048
     Dates: start: 20100225, end: 20100226

REACTIONS (3)
  - INFECTION [None]
  - PYREXIA [None]
  - TRANSPLANT REJECTION [None]
